FAERS Safety Report 6161165-7 (Version None)
Quarter: 2009Q2

REPORT INFORMATION
  Report Type: 
  Country: None (occurrence: None)
  Receive Date: 20090421
  Receipt Date: 20090409
  Transmission Date: 20091009
  Serious: Yes (Hospitalization)
  Sender: FDA-Public Use
  Company Number: US-JNJFOC-20090403895

PATIENT
  Age: 29 Year
  Sex: Female
  Weight: 38.1 kg

DRUGS (6)
  1. EXTRA STRENGTH TYLENOL [Suspect]
     Route: 048
  2. EXTRA STRENGTH TYLENOL [Suspect]
     Indication: PYREXIA
     Dosage: 1000 MG, 3 TIMES IN A 29 HOUR PERIOD
     Route: 048
  3. PHENOBARBITAL [Concomitant]
     Indication: CONVULSION
  4. BACTRIM [Concomitant]
     Indication: INFECTION PROPHYLAXIS
  5. ACIPHEX [Concomitant]
     Indication: GASTROOESOPHAGEAL REFLUX DISEASE
     Dosage: 'MANY YEARS'
  6. MULTI-VITAMIN [Concomitant]
     Indication: VITAMIN SUPPLEMENTATION

REACTIONS (1)
  - RENAL FAILURE [None]
